FAERS Safety Report 15677255 (Version 2)
Quarter: 2018Q4

REPORT INFORMATION
  Report Type: Spontaneous
  Country: BE (occurrence: BE)
  Receive Date: 20181130
  Receipt Date: 20181227
  Transmission Date: 20190205
  Serious: Yes (Hospitalization, Other)
  Sender: FDA-Public Use
  Company Number: BE-GILEAD-2018-0377326

PATIENT
  Age: 53 Year
  Sex: Male
  Weight: 70 kg

DRUGS (5)
  1. EPCLUSA [Suspect]
     Active Substance: SOFOSBUVIR\VELPATASVIR
     Indication: CHRONIC HEPATITIS C
     Dosage: UNK
     Route: 065
     Dates: start: 20181029
  2. TEMESTA EXPIDET [Concomitant]
     Active Substance: LORAZEPAM
     Dosage: 1 MG, UNK
     Route: 048
  3. OXYCONTIN [Concomitant]
     Active Substance: OXYCODONE HYDROCHLORIDE
     Dosage: 10 MG, UNK
     Route: 048
  4. VALIUM [Concomitant]
     Active Substance: DIAZEPAM
     Dosage: 10 MG, UNK
     Route: 048
  5. ZOLPIDEM [Concomitant]
     Active Substance: ZOLPIDEM\ZOLPIDEM TARTRATE
     Dosage: 10 MG, UNK
     Route: 048

REACTIONS (5)
  - Loss of consciousness [Recovered/Resolved]
  - Alcohol poisoning [Recovered/Resolved]
  - Toxicity to various agents [Recovered/Resolved]
  - Hypothermia [Recovered/Resolved]
  - Alcohol problem [Unknown]

NARRATIVE: CASE EVENT DATE: 20181104
